FAERS Safety Report 13747383 (Version 1)
Quarter: 2017Q3

REPORT INFORMATION
  Report Type: Spontaneous
  Country: US (occurrence: US)
  Receive Date: 20170712
  Receipt Date: 20170712
  Transmission Date: 20171127
  Serious: No
  Sender: FDA-Public Use
  Company Number: US-VIRTUS PHARMACEUTICALS, LLC-2017VTS00596

PATIENT
  Age: 62 Year
  Sex: Female
  Weight: 43.84 kg

DRUGS (1)
  1. PROMETRIUM [Suspect]
     Active Substance: PROGESTERONE
     Indication: MENOPAUSE
     Dosage: 100 MG, 1X/DAY
     Route: 048
     Dates: start: 20161210

REACTIONS (5)
  - Hyperhidrosis [Not Recovered/Not Resolved]
  - Drug ineffective [Not Recovered/Not Resolved]
  - Malaise [Not Recovered/Not Resolved]
  - Hot flush [Not Recovered/Not Resolved]
  - Nervousness [Not Recovered/Not Resolved]

NARRATIVE: CASE EVENT DATE: 201612
